FAERS Safety Report 21859245 (Version 1)
Quarter: 2023Q1

REPORT INFORMATION
  Report Type: Spontaneous
  Country: US (occurrence: US)
  Receive Date: 20230113
  Receipt Date: 20230113
  Transmission Date: 20230418
  Serious: Yes (Other)
  Sender: FDA-Public Use
  Company Number: US-ASTELLAS-2023US001410

PATIENT
  Age: 76 Year
  Sex: Female

DRUGS (3)
  1. PADCEV [Suspect]
     Active Substance: ENFORTUMAB VEDOTIN-EJFV
     Indication: Transitional cell carcinoma
     Dosage: UNK UNK, UNKNOWN FREQ. (15 WEEKS)(2ND LINE)
     Route: 065
  2. PEMBROLIZUMAB [Concomitant]
     Active Substance: PEMBROLIZUMAB
     Indication: Transitional cell carcinoma
     Dosage: UNK UNK, UNKNOWN FREQ. (32 WEEKS)(1ST LINE)
     Route: 065
  3. CISPLATIN;GEMCITABINE [Concomitant]
     Indication: Transitional cell carcinoma
     Dosage: UNK UNK, UNKNOWN FREQ. (14 WEEKS)(NEOADJUVANT)
     Route: 065

REACTIONS (2)
  - Pancreatitis [Unknown]
  - Therapeutic product effect incomplete [Unknown]
